FAERS Safety Report 4629071-4 (Version None)
Quarter: 2005Q2

REPORT INFORMATION
  Report Type: 
  Country: None (occurrence: None)
  Receive Date: 20050407
  Receipt Date: 20050329
  Transmission Date: 20051028
  Serious: Yes (Other)
  Sender: FDA-Public Use
  Company Number: 8009391

PATIENT
  Age: 21 Year
  Sex: Female
  Weight: 70.5 kg

DRUGS (3)
  1. AMOXICILLIN [Suspect]
     Indication: EAR INFECTION
     Route: 048
     Dates: start: 20050201, end: 20050301
  2. KEPPRA [Suspect]
     Dosage: 1500MG PER DAY
     Route: 048
     Dates: start: 20041201, end: 20050301
  3. KEPPRA [Suspect]
     Dosage: 1000MG TWICE PER DAY
     Route: 048
     Dates: start: 20050301

REACTIONS (4)
  - DEPRESSED LEVEL OF CONSCIOUSNESS [None]
  - DRUG INTERACTION [None]
  - LOSS OF CONSCIOUSNESS [None]
  - STARING [None]
